FAERS Safety Report 21221041 (Version 1)
Quarter: 2022Q3

REPORT INFORMATION
  Report Type: Report from Study
  Country: US (occurrence: US)
  Receive Date: 20220817
  Receipt Date: 20220817
  Transmission Date: 20221027
  Serious: Yes (Other)
  Sender: FDA-Public Use
  Company Number: US-BRISTOL-MYERS SQUIBB COMPANY-2022-087217

PATIENT
  Age: 35 Year
  Sex: Male

DRUGS (1)
  1. ZEPOSIA [Suspect]
     Active Substance: OZANIMOD HYDROCHLORIDE
     Indication: Colitis ulcerative
     Route: 048
     Dates: start: 20211218

REACTIONS (10)
  - Drug ineffective [Unknown]
  - Haemorrhage [Unknown]
  - Pain [Unknown]
  - Pyrexia [Unknown]
  - Chills [Unknown]
  - Influenza like illness [Unknown]
  - Back pain [Unknown]
  - Arthralgia [Unknown]
  - Adverse event [Unknown]
  - Blister [Recovered/Resolved]
